FAERS Safety Report 8649549 (Version 3)
Quarter: 2013Q4

REPORT INFORMATION
  Report Type: Report from Study
  Country: JP (occurrence: JP)
  Receive Date: 20120705
  Receipt Date: 20131217
  Transmission Date: 20140711
  Serious: Yes (Life-Threatening)
  Sender: FDA-Public Use
  Company Number: PHHY2012JP057272

PATIENT
  Age: 61 Year
  Sex: Male

DRUGS (10)
  1. AMN107 [Suspect]
     Indication: ACUTE LYMPHOCYTIC LEUKAEMIA
     Dosage: 800 MG, DAILY
     Route: 048
     Dates: start: 20100129
  2. AMN107 [Suspect]
     Indication: OFF LABEL USE
  3. URSO [Concomitant]
     Indication: PROPHYLAXIS
     Dosage: 600 MG
     Route: 048
     Dates: start: 20100203
  4. URSO [Concomitant]
     Dosage: 300 MG, UNK
     Route: 048
  5. URSO [Concomitant]
     Dosage: 600 MG, UNK
     Route: 048
  6. MUCOSTA [Concomitant]
     Indication: NAUSEA
     Dosage: 300 MG
     Route: 048
     Dates: start: 20091222, end: 20110313
  7. GASMOTIN [Concomitant]
     Indication: NAUSEA
     Dosage: 15 MG
     Route: 048
     Dates: start: 20100430, end: 20100701
  8. TAKEPRON [Concomitant]
     Indication: NAUSEA
     Dosage: 15 MG
     Route: 048
     Dates: start: 20100430, end: 20110313
  9. DEPAS [Concomitant]
     Indication: DEPRESSION
     Dosage: 3 MG
     Dates: start: 20100521, end: 20110313
  10. ROHYPNOL [Concomitant]
     Indication: DEPRESSION
     Dosage: 2 MG
     Route: 048
     Dates: start: 20100723, end: 20110313

REACTIONS (3)
  - Blast cells [Unknown]
  - White blood cell count increased [Unknown]
  - Platelet count decreased [Unknown]
